FAERS Safety Report 11427465 (Version 1)
Quarter: 2015Q3

REPORT INFORMATION
  Report Type: Spontaneous
  Country: US (occurrence: US)
  Receive Date: 20150827
  Receipt Date: 20150827
  Transmission Date: 20151125
  Serious: No
  Sender: FDA-Public Use
  Company Number: US-SA-2015SA013742

PATIENT
  Age: 33 Year
  Sex: Male
  Weight: 81.6 kg

DRUGS (18)
  1. FABRAZYME [Suspect]
     Active Substance: AGALSIDASE BETA
     Indication: FABRY^S DISEASE
     Route: 041
     Dates: start: 20100120
  2. NORMAL SALINE [Concomitant]
     Active Substance: SODIUM CHLORIDE
  3. EPIPEN [Concomitant]
     Active Substance: EPINEPHRINE
  4. SOLU-CORTEF [Concomitant]
     Active Substance: HYDROCORTISONE SODIUM SUCCINATE
  5. HEPARIN [Concomitant]
     Active Substance: HEPARIN SODIUM
  6. PARACETAMOL/BUTALBITAL/CAFFEINE [Concomitant]
  7. BENADRYL [Concomitant]
     Active Substance: DIPHENHYDRAMINE HYDROCHLORIDE
     Route: 042
  8. SODIUM CHLORIDE. [Concomitant]
     Active Substance: SODIUM CHLORIDE
  9. TEGRETOL [Concomitant]
     Active Substance: CARBAMAZEPINE
  10. DICLOFENAC [Concomitant]
     Active Substance: DICLOFENAC
  11. FIORICET [Concomitant]
     Active Substance: ACETAMINOPHEN\BUTALBITAL\CAFFEINE
  12. IBUPROFEN. [Concomitant]
     Active Substance: IBUPROFEN
  13. DIPHENHYDRAMINE. [Concomitant]
     Active Substance: DIPHENHYDRAMINE
  14. PREDNISOLONE. [Concomitant]
     Active Substance: PREDNISOLONE
  15. TRAMADOL. [Concomitant]
     Active Substance: TRAMADOL
  16. FABRAZYME [Suspect]
     Active Substance: AGALSIDASE BETA
     Indication: FABRY^S DISEASE
     Route: 041
     Dates: start: 20100120
  17. LMX 5 [Concomitant]
  18. VERAPAMIL [Concomitant]
     Active Substance: VERAPAMIL HYDROCHLORIDE

REACTIONS (1)
  - Pain in extremity [Recovered/Resolved]
